FAERS Safety Report 24292461 (Version 1)
Quarter: 2024Q3

REPORT INFORMATION
  Report Type: Spontaneous
  Country: US (occurrence: None)
  Receive Date: 20240906
  Receipt Date: 20240906
  Transmission Date: 20241016
  Serious: Yes (Hospitalization)
  Sender: Public
  Company Number: None

PATIENT
  Age: 58 Year
  Sex: Female

DRUGS (2)
  1. CEFTRIAXONE [Suspect]
     Active Substance: CEFTRIAXONE\CEFTRIAXONE SODIUM
     Indication: Device related infection
     Dosage: 2 G GRAM DAILY INTRAVENOUS
     Route: 042
     Dates: start: 20240701, end: 20240702
  2. VANCOMYCIN [Suspect]
     Active Substance: VANCOMYCIN

REACTIONS (8)
  - Acute kidney injury [None]
  - Flushing [None]
  - Pruritus [None]
  - Pyrexia [None]
  - Rash [None]
  - Swelling [None]
  - Drug hypersensitivity [None]
  - Infusion related reaction [None]

NARRATIVE: CASE EVENT DATE: 20240701
